FAERS Safety Report 11109113 (Version 1)
Quarter: 2015Q2

REPORT INFORMATION
  Report Type: Spontaneous
  Country: NO (occurrence: NO)
  Receive Date: 20150513
  Receipt Date: 20150513
  Transmission Date: 20150821
  Serious: Yes (Hospitalization, Other)
  Sender: FDA-Public Use
  Company Number: NO-AMGEN-NORSP2015045658

PATIENT
  Age: 84 Year
  Sex: Female

DRUGS (2)
  1. ENBREL [Suspect]
     Active Substance: ETANERCEPT
     Indication: PRODUCT USED FOR UNKNOWN INDICATION
     Dosage: 50 MG, QWK
     Route: 058
  2. ASASANTIN [Concomitant]
     Active Substance: ASPIRIN\DIPYRIDAMOLE
     Dosage: UNK

REACTIONS (5)
  - Metastases to lymph nodes [Unknown]
  - Metastases to liver [Unknown]
  - Pancreatic carcinoma metastatic [Unknown]
  - Large intestine polyp [Unknown]
  - Hiatus hernia [Unknown]

NARRATIVE: CASE EVENT DATE: 2015
